FAERS Safety Report 24035785 (Version 1)
Quarter: 2024Q3

REPORT INFORMATION
  Report Type: Spontaneous
  Country: US (occurrence: US)
  Receive Date: 20240701
  Receipt Date: 20240701
  Transmission Date: 20241017
  Serious: No
  Sender: SANOFI AVENTIS
  Company Number: US-SA-SAC20240625000805

PATIENT
  Age: 16 Year
  Sex: Male
  Weight: 73 kg

DRUGS (5)
  1. ELOCTATE [Suspect]
     Active Substance: EFMOROCTOCOG ALFA
     Indication: Factor VIII deficiency
     Dosage: 1750 U (1575-1925), PRN, FOR MINOR BREAKTHROUGH BLEED
     Route: 042
     Dates: start: 201907
  2. ELOCTATE [Suspect]
     Active Substance: EFMOROCTOCOG ALFA
     Indication: Factor VIII deficiency
     Dosage: 1750 U (1575-1925), PRN, FOR MINOR BREAKTHROUGH BLEED
     Route: 042
     Dates: start: 201907
  3. ELOCTATE [Suspect]
     Active Substance: EFMOROCTOCOG ALFA
     Dosage: 3500 U (3150-3850), PRN, FOR SEVERE BREAKTHROUGH BLEED
     Route: 042
  4. ELOCTATE [Suspect]
     Active Substance: EFMOROCTOCOG ALFA
     Dosage: 3500 U (3150-3850), PRN, FOR SEVERE BREAKTHROUGH BLEED
     Route: 042
  5. HEMLIBRA [Concomitant]
     Active Substance: EMICIZUMAB-KXWH
     Indication: Prophylaxis

REACTIONS (2)
  - Haemorrhage [Recovered/Resolved]
  - Weight increased [Unknown]

NARRATIVE: CASE EVENT DATE: 20240610
